FAERS Safety Report 19382481 (Version 1)
Quarter: 2021Q2

REPORT INFORMATION
  Report Type: Spontaneous
  Country: CN (occurrence: CN)
  Receive Date: 20210607
  Receipt Date: 20210607
  Transmission Date: 20210717
  Serious: Yes (Life-Threatening)
  Sender: FDA-Public Use
  Company Number: CN-BAYER-2021-153911

PATIENT
  Age: 75 Year
  Sex: Female
  Weight: 40 kg

DRUGS (2)
  1. IOPROMIDE. [Suspect]
     Active Substance: IOPROMIDE
     Indication: ORAL DISCOMFORT
     Dosage: UNK, ONCE
     Route: 042
     Dates: start: 20210526, end: 20210526
  2. IOPROMIDE. [Suspect]
     Active Substance: IOPROMIDE
     Indication: COMPUTERISED TOMOGRAM

REACTIONS (6)
  - Loss of consciousness [Unknown]
  - Dyspnoea [Unknown]
  - Urinary incontinence [Unknown]
  - Oxygen saturation immeasurable [Unknown]
  - Shock [Unknown]
  - Blood pressure immeasurable [Unknown]

NARRATIVE: CASE EVENT DATE: 20210526
